FAERS Safety Report 6902259-5 (Version None)
Quarter: 2010Q3

REPORT INFORMATION
  Report Type: 
  Country: None (occurrence: None)
  Receive Date: 20100803
  Receipt Date: 20080508
  Transmission Date: 20110219
  Serious: No
  Sender: FDA-Public Use
  Company Number: US-PFIZER INC-2008040229

PATIENT
  Sex: Female
  Weight: 81.8 kg

DRUGS (17)
  1. LYRICA [Suspect]
     Indication: FIBROMYALGIA
     Dates: start: 20070101, end: 20080201
  2. DIAZEPAM [Concomitant]
  3. SYNTHROID [Concomitant]
  4. PREMARIN [Concomitant]
  5. ATENOLOL [Concomitant]
  6. METFORMIN HCL [Concomitant]
  7. VESICARE [Concomitant]
  8. NIASPAN [Concomitant]
  9. ULTRAM [Concomitant]
  10. LEXAPRO [Concomitant]
  11. HYDROCODONE BITARTRATE [Concomitant]
  12. IBUPROFEN [Concomitant]
  13. OXYCODONE [Concomitant]
  14. IRON DEXTRAN [Concomitant]
  15. IRON [Concomitant]
  16. CALCIUM [Concomitant]
  17. VITAMIN E [Concomitant]

REACTIONS (1)
  - SOMNOLENCE [None]
